FAERS Safety Report 5225156-2 (Version None)
Quarter: 2007Q1

REPORT INFORMATION
  Report Type: 
  Country: None (occurrence: None)
  Receive Date: 20070131
  Receipt Date: 20070125
  Transmission Date: 20070707
  Serious: Yes (Death)
  Sender: FDA-Public Use
  Company Number: ES-MERCK-0701ESP00046

PATIENT
  Age: 74 Year
  Sex: Male

DRUGS (2)
  1. COSOPT [Suspect]
     Indication: OCULAR HYPERTENSION
     Route: 047
     Dates: start: 20061212, end: 20061212
  2. [THERAPY UNSPECIFIED] [Concomitant]
     Route: 047

REACTIONS (1)
  - DEATH [None]
